FAERS Safety Report 20956974 (Version 1)
Quarter: 2022Q2

REPORT INFORMATION
  Report Type: Spontaneous
  Country: US (occurrence: US)
  Receive Date: 20220614
  Receipt Date: 20220614
  Transmission Date: 20220721
  Serious: No
  Sender: FDA-Public Use
  Company Number: US-BAYER-2022A080340

PATIENT
  Age: 77 Year
  Sex: Female

DRUGS (1)
  1. ALEVE [Suspect]
     Active Substance: NAPROXEN SODIUM
     Indication: Pain
     Dosage: 1 PILL
     Route: 048
     Dates: start: 20220603, end: 20220603

REACTIONS (3)
  - Burning sensation [Recovered/Resolved]
  - Gastric disorder [Recovered/Resolved]
  - Sleep disorder [None]

NARRATIVE: CASE EVENT DATE: 20220603
